FAERS Safety Report 15467384 (Version 1)
Quarter: 2018Q4

REPORT INFORMATION
  Report Type: Spontaneous
  Country: ZA (occurrence: ZA)
  Receive Date: 20181005
  Receipt Date: 20181005
  Transmission Date: 20190204
  Serious: Yes (Death)
  Sender: FDA-Public Use
  Company Number: ZA-ASTRAZENECA-2018SF27579

PATIENT
  Age: 57 Year
  Sex: Female

DRUGS (10)
  1. TRUSTAN [Suspect]
     Active Substance: ESOMEPRAZOLE
     Dosage: 40.0MG UNKNOWN
     Route: 048
  2. PREDNISONE. [Suspect]
     Active Substance: PREDNISONE
     Dosage: 5.0MG UNKNOWN
     Route: 065
  3. FOLIC ACID. [Suspect]
     Active Substance: FOLIC ACID
     Dosage: 5.0MG UNKNOWN
     Route: 065
  4. LYRICA [Suspect]
     Active Substance: PREGABALIN
     Dosage: 75.0MG UNKNOWN
     Route: 065
  5. CARDICOR [Suspect]
     Active Substance: BISOPROLOL
     Dosage: 2.5MG UNKNOWN
     Route: 065
  6. STILNOX [Suspect]
     Active Substance: ZOLPIDEM TARTRATE
     Dosage: 12.5MG UNKNOWN
     Route: 065
  7. METHOTREXATE. [Suspect]
     Active Substance: METHOTREXATE
     Dosage: 2.5MG UNKNOWN
     Route: 065
  8. PURICOS [Suspect]
     Active Substance: ALLOPURINOL
     Dosage: 300.0MG UNKNOWN
     Route: 065
  9. DULOXETINE. [Suspect]
     Active Substance: DULOXETINE
     Dosage: 60.0MG UNKNOWN
     Route: 065
  10. CLOPIDOGREL [Suspect]
     Active Substance: CLOPIDOGREL BISULFATE
     Dosage: 75/75MG
     Route: 065

REACTIONS (1)
  - Death [Fatal]
